FAERS Safety Report 4626496-8 (Version None)
Quarter: 2005Q2

REPORT INFORMATION
  Report Type: 
  Country: None (occurrence: None)
  Receive Date: 20050404
  Receipt Date: 20050307
  Transmission Date: 20051028
  Serious: Yes (Hospitalization)
  Sender: FDA-Public Use
  Company Number: JP-MERCK-0503USA05012

PATIENT
  Age: 51 Year
  Sex: Male

DRUGS (3)
  1. DECADRON [Suspect]
     Indication: MULTIPLE MYELOMA
     Route: 048
     Dates: end: 20050110
  2. DECADRON [Suspect]
     Route: 048
     Dates: start: 20050111, end: 20050223
  3. THALIDOMIDE [Suspect]
     Indication: MULTIPLE MYELOMA
     Route: 065
     Dates: start: 20041101

REACTIONS (1)
  - DEEP VEIN THROMBOSIS [None]
